FAERS Safety Report 5106274-6 (Version None)
Quarter: 2006Q3

REPORT INFORMATION
  Report Type: 
  Country: None (occurrence: None)
  Receive Date: 20060918
  Receipt Date: 20060907
  Transmission Date: 20061208
  Serious: Yes (Hospitalization)
  Sender: FDA-Public Use
  Company Number: PHHO2006DK15260

PATIENT
  Age: 85 Year
  Sex: Male

DRUGS (2)
  1. DIOVAN COMP [Suspect]
     Indication: HYPERTENSION
     Dosage: 160 MG / 25 MG PER DAY
     Dates: start: 20060315, end: 20060425
  2. DIOVAN [Suspect]
     Indication: HYPERTENSION
     Dosage: 80 MG, BID

REACTIONS (2)
  - HYPERTENSION [None]
  - SYNCOPE [None]
